FAERS Safety Report 6086780-0 (Version None)
Quarter: 2009Q1

REPORT INFORMATION
  Report Type: 
  Country: None (occurrence: None)
  Receive Date: 20090223
  Receipt Date: 20090212
  Transmission Date: 20090719
  Serious: Yes (Disabling, Other)
  Sender: FDA-Public Use
  Company Number: DK-JNJFOC-20090200836

PATIENT
  Sex: Female

DRUGS (1)
  1. REMICADE [Suspect]
     Indication: ARTHRITIS
     Route: 042

REACTIONS (2)
  - ECZEMA [None]
  - PUSTULAR PSORIASIS [None]
